FAERS Safety Report 12881995 (Version 2)
Quarter: 2016Q4

REPORT INFORMATION
  Report Type: Report from Study
  Country: DE (occurrence: DE)
  Receive Date: 20161025
  Receipt Date: 20161129
  Transmission Date: 20170207
  Serious: Yes (Hospitalization)
  Sender: FDA-Public Use
  Company Number: PHHO2010DE020923

PATIENT
  Age: 71 Year
  Sex: Male
  Weight: 80 kg

DRUGS (5)
  1. FLUDARABINE PHOSPHATE. [Suspect]
     Active Substance: FLUDARABINE PHOSPHATE
     Indication: CHRONIC LYMPHOCYTIC LEUKAEMIA
     Dosage: 53 MG/M2, DAYS 1-3 EVERY 28 DAYS FOR 6 CYCLES
     Route: 042
     Dates: start: 20100322, end: 20100421
  2. CYCLOPHOSPHAMIDE. [Suspect]
     Active Substance: CYCLOPHOSPHAMIDE
     Indication: CHRONIC LYMPHOCYTIC LEUKAEMIA
     Dosage: 530 MG/M2,DAYS 1-3 EVERY 28 DAYS FOR 6 CYCLES
     Route: 042
     Dates: start: 20100322, end: 20100421
  3. OFATUMUMAB [Suspect]
     Active Substance: OFATUMUMAB
     Indication: CHRONIC LYMPHOCYTIC LEUKAEMIA
     Dosage: 300 MG, CYCLE 1, DAY 1
     Route: 042
     Dates: start: 20100322, end: 20100322
  4. OFATUMUMAB [Suspect]
     Active Substance: OFATUMUMAB
     Dosage: 1000 MG, CYCLE 1, DAY 08
     Route: 042
     Dates: start: 20100330, end: 20100330
  5. OFATUMUMAB [Suspect]
     Active Substance: OFATUMUMAB
     Dosage: 1000 MG, CYCLE 2, DAY 29
     Route: 042
     Dates: start: 20100419, end: 20100419

REACTIONS (1)
  - Pneumonia [Recovered/Resolved]

NARRATIVE: CASE EVENT DATE: 20100525
